FAERS Safety Report 12679876 (Version 1)
Quarter: 2016Q3

REPORT INFORMATION
  Report Type: Spontaneous
  Country: US (occurrence: US)
  Receive Date: 20160824
  Receipt Date: 20160824
  Transmission Date: 20161109
  Serious: No
  Sender: FDA-Public Use
  Company Number: US-JNJFOC-20160717736

PATIENT
  Age: 82 Year
  Sex: Male

DRUGS (2)
  1. NIZORAL [Suspect]
     Active Substance: KETOCONAZOLE
     Route: 061
  2. NIZORAL [Suspect]
     Active Substance: KETOCONAZOLE
     Indication: ROSACEA
     Dosage: DIME SIZE
     Route: 061

REACTIONS (3)
  - Off label use [Unknown]
  - Dry skin [Unknown]
  - Product use issue [Unknown]
